FAERS Safety Report 13814129 (Version 1)
Quarter: 2017Q3

REPORT INFORMATION
  Report Type: Spontaneous
  Country: US (occurrence: US)
  Receive Date: 20170730
  Receipt Date: 20170730
  Transmission Date: 20171127
  Serious: Yes (Disabling)
  Sender: FDA-Public Use
  Company Number: None

PATIENT
  Sex: Female
  Weight: 72 kg

DRUGS (12)
  1. NASONEX [Suspect]
     Active Substance: MOMETASONE FUROATE
     Indication: ASTHMA
     Dosage: ?          QUANTITY:1 SPRAY(S);OTHER ROUTE:IN EACH NOSTRIL?
     Route: 045
     Dates: start: 20000101, end: 20160610
  2. EPIPEN [Concomitant]
     Active Substance: EPINEPHRINE
  3. RESTASIS [Suspect]
     Active Substance: CYCLOSPORINE
     Indication: DRY EYE
     Dosage: ?          QUANTITY:1 DROP(S);?
     Route: 047
     Dates: start: 20151101
  4. ORTHO NOVUM [Concomitant]
     Active Substance: MESTRANOL\NORETHINDRONE
  5. WOMEN^S PROBIOTIC [Concomitant]
  6. RESTASIS [Concomitant]
     Active Substance: CYCLOSPORINE
  7. WOMEN^S MULTIVITAMIN [Concomitant]
  8. ACIPHEX [Concomitant]
     Active Substance: RABEPRAZOLE SODIUM
  9. PATANOL [Concomitant]
     Active Substance: OLOPATADINE HYDROCHLORIDE
  10. ADDERALL [Concomitant]
     Active Substance: AMPHETAMINE ASPARTATE\AMPHETAMINE SULFATE\DEXTROAMPHETAMINE SACCHARATE\DEXTROAMPHETAMINE SULFATE
  11. NASONEX [Suspect]
     Active Substance: MOMETASONE FUROATE
     Indication: MULTIPLE ALLERGIES
     Dosage: ?          QUANTITY:1 SPRAY(S);OTHER ROUTE:IN EACH NOSTRIL?
     Route: 045
     Dates: start: 20000101, end: 20160610
  12. XYZAL [Concomitant]
     Active Substance: LEVOCETIRIZINE DIHYDROCHLORIDE

REACTIONS (2)
  - Cataract nuclear [None]
  - Drug interaction [None]

NARRATIVE: CASE EVENT DATE: 20160325
